FAERS Safety Report 16012960 (Version 1)
Quarter: 2019Q1

REPORT INFORMATION
  Report Type: Spontaneous
  Country: JP (occurrence: JP)
  Receive Date: 20190227
  Receipt Date: 20190227
  Transmission Date: 20190418
  Serious: Yes (Other)
  Sender: FDA-Public Use
  Company Number: JP-PFIZER INC-2019078767

PATIENT
  Sex: Female

DRUGS (1)
  1. SUTENT [Suspect]
     Active Substance: SUNITINIB MALATE
     Indication: GASTROINTESTINAL STROMAL CANCER
     Dosage: 50 MG, DAILY
     Route: 048
     Dates: end: 20190205

REACTIONS (2)
  - Glomerulonephritis membranous [Unknown]
  - Nephrotic syndrome [Unknown]

NARRATIVE: CASE EVENT DATE: 20190205
